FAERS Safety Report 14771384 (Version 2)
Quarter: 2018Q3

REPORT INFORMATION
  Report Type: Spontaneous
  Country: IT (occurrence: IT)
  Receive Date: 20180417
  Receipt Date: 20180822
  Transmission Date: 20181010
  Serious: Yes (Other)
  Sender: FDA-Public Use
  Company Number: IT-SHIRE-IT201813964

PATIENT

DRUGS (3)
  1. 476 (MESALAZINE/MESALAMINE) [Suspect]
     Active Substance: MESALAMINE
     Dosage: UNK
     Route: 048
     Dates: start: 2014, end: 20180213
  2. 476 (MESALAZINE/MESALAMINE) [Suspect]
     Active Substance: MESALAMINE
     Indication: CROHN^S DISEASE
     Dosage: UNK
     Route: 061
     Dates: start: 2014, end: 20180213
  3. INFLECTRA [Suspect]
     Active Substance: INFLIXIMAB-DYYB
     Indication: INFLAMMATORY BOWEL DISEASE
     Dosage: 400 MG, EVERY 8 WEEKS ; CYCLICAL
     Route: 042
     Dates: start: 20160224, end: 20171219

REACTIONS (2)
  - Renal failure [Recovered/Resolved]
  - Bladder disorder [Recovered/Resolved with Sequelae]

NARRATIVE: CASE EVENT DATE: 20180129
